FAERS Safety Report 7486894-4 (Version None)
Quarter: 2011Q2

REPORT INFORMATION
  Report Type: 
  Country: None (occurrence: None)
  Receive Date: 20110517
  Receipt Date: 20110506
  Transmission Date: 20111010
  Serious: Yes (Hospitalization)
  Sender: FDA-Public Use
  Company Number: US-BAXTER-2011BH008952

PATIENT
  Age: 70 Year
  Sex: Female
  Weight: 58 kg

DRUGS (19)
  1. BORTEZOMIB [Suspect]
     Indication: MULTIPLE MYELOMA
     Route: 042
     Dates: start: 20101025, end: 20101104
  2. ETOPOSIDE [Suspect]
     Indication: MULTIPLE MYELOMA
     Route: 042
     Dates: start: 20101123, end: 20101126
  3. BICITRA [Concomitant]
     Indication: PH URINE DECREASED
     Route: 065
     Dates: start: 20101122, end: 20101130
  4. DEXAMETHASONE [Suspect]
     Route: 048
     Dates: start: 20101025, end: 20101104
  5. DARBEPOETIN ALFA [Concomitant]
     Indication: ANAEMIA
     Route: 065
     Dates: start: 20100108
  6. DEXAMETHASONE [Suspect]
     Indication: MULTIPLE MYELOMA
     Route: 042
     Dates: start: 20101123, end: 20101126
  7. OXYCODONE HCL [Concomitant]
     Indication: PAIN
     Route: 065
     Dates: start: 20101025
  8. CISPLATIN [Suspect]
     Indication: MULTIPLE MYELOMA
     Route: 042
     Dates: start: 20101123, end: 20101126
  9. LIDOCAINE [Concomitant]
     Indication: PAIN
     Route: 065
     Dates: start: 20101018
  10. PROCHLORPERAZINE MALEATE [Concomitant]
     Indication: NAUSEA
     Route: 065
     Dates: start: 20100108
  11. ZOLEDRONIC ACID [Concomitant]
     Indication: BONE DISORDER
     Route: 065
     Dates: start: 20090101
  12. CYCLOPHOSPHAMIDE [Suspect]
     Indication: MULTIPLE MYELOMA
     Route: 042
     Dates: start: 20101123, end: 20101126
  13. FAMOTIDINE [Concomitant]
     Indication: GASTROOESOPHAGEAL REFLUX DISEASE
     Route: 065
     Dates: start: 20100108
  14. ACYCLOVIR [Concomitant]
     Indication: INFECTION
     Route: 065
     Dates: start: 20100108
  15. TYLENOL W/ CODEINE NO. 3 [Concomitant]
     Indication: PAIN
     Route: 065
     Dates: start: 20101018, end: 20101130
  16. AZITHROMYCIN [Concomitant]
     Indication: UPPER RESPIRATORY TRACT INFECTION
     Route: 065
     Dates: start: 20101124, end: 20101126
  17. STUDY DRUG [Suspect]
     Indication: MULTIPLE MYELOMA
     Route: 048
     Dates: start: 20101018, end: 20101109
  18. FLUCONAZOLE [Concomitant]
     Indication: INFECTION
     Route: 065
     Dates: start: 20100108
  19. LEVAQUIN [Concomitant]
     Indication: URINARY TRACT INFECTION
     Route: 065
     Dates: start: 20101117, end: 20101122

REACTIONS (2)
  - ASTHENIA [None]
  - MENTAL STATUS CHANGES [None]
